FAERS Safety Report 26166531 (Version 1)
Quarter: 2025Q4

REPORT INFORMATION
  Report Type: Spontaneous
  Country: EU (occurrence: EU)
  Receive Date: 20251217
  Receipt Date: 20251217
  Transmission Date: 20260117
  Serious: Yes (Other)
  Sender: MERCK SHARP & DOHME LLC
  Company Number: EU-009507513-2351048

PATIENT
  Age: 37 Year
  Sex: Female
  Weight: 104 kg

DRUGS (4)
  1. PEMBROLIZUMAB [Suspect]
     Active Substance: PEMBROLIZUMAB
     Indication: Endometrial cancer recurrent
     Route: 042
     Dates: start: 20240703, end: 20250129
  2. LENVATINIB [Suspect]
     Active Substance: LENVATINIB
     Indication: Endometrial cancer recurrent
     Dosage: UNSPECIFIED DOSE REDUCTION
     Route: 048
  3. LENVATINIB [Suspect]
     Active Substance: LENVATINIB
     Indication: Endometrial cancer recurrent
     Route: 048
     Dates: start: 20240703, end: 20250129
  4. PREGABALIN [Concomitant]
     Active Substance: PREGABALIN
     Dosage: 75 MG; TOTAL DAILY DOSE 225 MG
     Route: 048

REACTIONS (7)
  - Tumour haemorrhage [Unknown]
  - Hypertension [Unknown]
  - Hepatic enzyme increased [Unknown]
  - Liver disorder [Unknown]
  - Hyperthyroidism [Unknown]
  - Malignant neoplasm progression [Unknown]
  - Haematotoxicity [Unknown]
